FAERS Safety Report 4278986-8 (Version None)
Quarter: 2004Q1

REPORT INFORMATION
  Report Type: 
  Country: None (occurrence: None)
  Receive Date: 20040126
  Receipt Date: 20040109
  Transmission Date: 20041129
  Serious: Yes (Hospitalization)
  Sender: FDA-Public Use
  Company Number: WAES 0401FRA00019

PATIENT
  Age: 96 Year
  Sex: Female

DRUGS (2)
  1. ASPIRIN LYSINE [Suspect]
     Indication: THROMBOSIS PROPHYLAXIS
     Route: 048
  2. VIOXX [Suspect]
     Indication: BACK PAIN
     Route: 048
     Dates: start: 20031208, end: 20031210

REACTIONS (7)
  - DRUG INTERACTION [None]
  - DUODENAL ULCER [None]
  - ESCHERICHIA URINARY TRACT INFECTION [None]
  - GASTROINTESTINAL HAEMORRHAGE [None]
  - HAEMATEMESIS [None]
  - HALLUCINATION, VISUAL [None]
  - MELAENA [None]
